FAERS Safety Report 10337970 (Version 1)
Quarter: 2014Q3

REPORT INFORMATION
  Report Type: Spontaneous
  Country: US (occurrence: None)
  Receive Date: 20140722
  Receipt Date: 20140722
  Transmission Date: 20150326
  Serious: Yes (Other)
  Sender: FDA-Public Use
  Company Number: None

PATIENT
  Sex: Female
  Weight: 63.05 kg

DRUGS (2)
  1. ESZOPICLONE. [Suspect]
     Active Substance: ESZOPICLONE
     Indication: INSOMNIA
     Dosage: 2MG TABLS 1 PO QHS ORAL
     Route: 048
     Dates: start: 201404, end: 201406
  2. ESZOPICLONE. [Suspect]
     Active Substance: ESZOPICLONE
     Indication: ANXIETY
     Dosage: 2MG TABLS 1 PO QHS ORAL
     Route: 048
     Dates: start: 201404, end: 201406

REACTIONS (4)
  - Insomnia [None]
  - Product substitution issue [None]
  - Migraine [None]
  - Middle insomnia [None]
